FAERS Safety Report 6359671-5 (Version None)
Quarter: 2009Q3

REPORT INFORMATION
  Report Type: 
  Country: None (occurrence: None)
  Receive Date: 20090917
  Receipt Date: 20090911
  Transmission Date: 20100115
  Serious: Yes (Life-Threatening)
  Sender: FDA-Public Use
  Company Number: JP-ASTRAZENECA-2009SE13153

PATIENT
  Age: 76 Year
  Sex: Female

DRUGS (1)
  1. BLOPRESS [Suspect]
     Indication: DRUG USE FOR UNKNOWN INDICATION
     Route: 048

REACTIONS (7)
  - HEADACHE [None]
  - MICTURITION URGENCY [None]
  - PAIN IN EXTREMITY [None]
  - PRURITUS GENITAL [None]
  - SUICIDAL IDEATION [None]
  - URINARY INCONTINENCE [None]
  - URTICARIA [None]
